FAERS Safety Report 4478658-0 (Version None)
Quarter: 2004Q4

REPORT INFORMATION
  Report Type: 
  Country: None (occurrence: None)
  Receive Date: 20040923
  Receipt Date: 20040526
  Transmission Date: 20050328
  Serious: No
  Sender: FDA-Public Use
  Company Number: USA040568711

PATIENT
  Sex: Female

DRUGS (1)
  1. FORTEO [Suspect]

REACTIONS (3)
  - CONSTIPATION [None]
  - DYSPNOEA [None]
  - FATIGUE [None]
